FAERS Safety Report 24311297 (Version 2)
Quarter: 2024Q3

REPORT INFORMATION
  Report Type: Report from Study
  Country: US (occurrence: US)
  Receive Date: 20240912
  Receipt Date: 20240928
  Transmission Date: 20241017
  Serious: Yes (Other)
  Sender: ABBVIE
  Company Number: US-ABBVIE-5914453

PATIENT
  Sex: Female

DRUGS (1)
  1. HUMIRA [Suspect]
     Active Substance: ADALIMUMAB
     Indication: Product used for unknown indication
     Route: 058
     Dates: start: 20130101

REACTIONS (4)
  - Intestinal obstruction [Unknown]
  - Gastrointestinal scarring [Unknown]
  - Crohn^s disease [Recovered/Resolved]
  - Therapeutic product effect decreased [Unknown]
